FAERS Safety Report 10945105 (Version 2)
Quarter: 2015Q1

REPORT INFORMATION
  Report Type: Spontaneous
  Country: US (occurrence: None)
  Receive Date: 20150319
  Receipt Date: 20150330
  Transmission Date: 20150721
  Serious: Yes (Hospitalization, Other)
  Sender: FDA-Public Use
  Company Number: ADR-2015-00520

PATIENT
  Age: 24 Year
  Sex: Male

DRUGS (3)
  1. BACLOFEN. [Suspect]
     Active Substance: BACLOFEN
     Indication: MUSCLE SPASTICITY
     Dosage: 800 MCG/ML
  2. ORAL BACLOFEN [Suspect]
     Active Substance: BACLOFEN
  3. ZANAFLEX [Suspect]
     Active Substance: TIZANIDINE HYDROCHLORIDE

REACTIONS (11)
  - Influenza [None]
  - Muscle spasticity [None]
  - Overdose [None]
  - Pneumonia [None]
  - Malaise [None]
  - Hypotonia [None]
  - No therapeutic response [None]
  - Urinary tract infection [None]
  - Somnolence [None]
  - Lethargy [None]
  - Muscle tightness [None]
